FAERS Safety Report 6063641-4 (Version None)
Quarter: 2009Q1

REPORT INFORMATION
  Report Type: 
  Country: None (occurrence: None)
  Receive Date: 20090203
  Receipt Date: 20090125
  Transmission Date: 20090719
  Serious: Yes (Death, Hospitalization)
  Sender: FDA-Public Use
  Company Number: ZW-ABBOTT-08P-190-0459157-00

PATIENT
  Age: 34 Year
  Sex: Female
  Weight: 54.6 kg

DRUGS (5)
  1. KALETRA [Suspect]
     Indication: HIV INFECTION
     Dosage: 200MG/50MG
     Route: 048
     Dates: start: 20080422, end: 20080509
  2. TENOFOVIR [Concomitant]
     Indication: HIV INFECTION
     Route: 048
     Dates: start: 20080422, end: 20080509
  3. EMTRICITABINE [Concomitant]
     Indication: HIV INFECTION
     Route: 048
     Dates: start: 20080422, end: 20080509
  4. COTRIM [Concomitant]
     Indication: OPPORTUNISTIC INFECTION PROPHYLAXIS
  5. FERROUS SULPHATE [Concomitant]
     Indication: ANAEMIA

REACTIONS (13)
  - ANAEMIA [None]
  - CONDITION AGGRAVATED [None]
  - CULTURE URINE POSITIVE [None]
  - DEEP VEIN THROMBOSIS [None]
  - DYSPNOEA [None]
  - ESCHERICHIA INFECTION [None]
  - GASTROINTESTINAL HAEMORRHAGE [None]
  - GENERAL PHYSICAL HEALTH DETERIORATION [None]
  - MUSCLE ABSCESS [None]
  - PERITONEAL DIALYSIS [None]
  - RENAL FAILURE ACUTE [None]
  - SALMONELLOSIS [None]
  - THROMBOCYTOPENIA [None]
